FAERS Safety Report 6526261-0 (Version None)
Quarter: 2009Q4

REPORT INFORMATION
  Report Type: 
  Country: None (occurrence: None)
  Receive Date: 20091228
  Receipt Date: 20091215
  Transmission Date: 20100525
  Serious: Yes (Other)
  Sender: FDA-Public Use
  Company Number: 234327K09USA

PATIENT
  Age: 33 Year
  Sex: Female
  Weight: 132 kg

DRUGS (3)
  1. REBIF [Suspect]
     Indication: MULTIPLE SCLEROSIS
     Dosage: 44 MCG, 3 IN 1 WEEKS, SUBUCTANEOUS
     Route: 058
     Dates: start: 20051208
  2. SOLU-MEDROL [Suspect]
     Indication: MULTIPLE SCLEROSIS RELAPSE
     Dosage: 1 G, 1 IN 1 DAYS, INTRAVENOUS (NOT OTHERWISE SPECIFIED)
     Route: 042
     Dates: start: 20070801, end: 20070901
  3. PREDNISONE [Suspect]
     Indication: MULTIPLE SCLEROSIS RELAPSE
     Dosage: ORAL
     Route: 048
     Dates: start: 20070801, end: 20070901

REACTIONS (10)
  - BLOOD TRIGLYCERIDES INCREASED [None]
  - DIABETES MELLITUS [None]
  - HEART RATE IRREGULAR [None]
  - HYPERTENSION [None]
  - MULTIPLE SCLEROSIS RELAPSE [None]
  - MUSCLE SPASMS [None]
  - NEURALGIA [None]
  - OPTIC NEURITIS [None]
  - URINARY RETENTION [None]
  - VERTIGO [None]
